FAERS Safety Report 15136450 (Version 2)
Quarter: 2018Q3

REPORT INFORMATION
  Report Type: Spontaneous
  Country: US (occurrence: US)
  Receive Date: 20180712
  Receipt Date: 20180810
  Transmission Date: 20181010
  Serious: No
  Sender: FDA-Public Use
  Company Number: US-APOTEX-2018AP016845

PATIENT
  Sex: Male

DRUGS (1)
  1. FLUTICASONE PROPIONATE. [Suspect]
     Active Substance: FLUTICASONE PROPIONATE
     Indication: PRODUCT USED FOR UNKNOWN INDICATION
     Dosage: 1 SPRAY IN ONE NOSTRIL DAILY FOR 28 DAYS
     Route: 065

REACTIONS (3)
  - Discomfort [Recovered/Resolved]
  - Scab [Recovered/Resolved]
  - Epistaxis [Recovered/Resolved]
